FAERS Safety Report 5691181-0 (Version None)
Quarter: 2008Q2

REPORT INFORMATION
  Report Type: 
  Country: None (occurrence: None)
  Receive Date: 20080402
  Receipt Date: 20080323
  Transmission Date: 20081010
  Serious: Yes (Hospitalization)
  Sender: FDA-Public Use
  Company Number: DK-BAYER-200815280GPV

PATIENT
  Age: 35 Year
  Sex: Female

DRUGS (2)
  1. MIRENA [Suspect]
     Indication: CONTRACEPTION
     Dosage: TOTAL DAILY DOSE: 20 ?G
     Route: 015
     Dates: start: 20070622, end: 20071101
  2. MIRENA [Suspect]
     Dosage: TOTAL DAILY DOSE: 20 ?G
     Route: 015
     Dates: start: 20060101, end: 20060101

REACTIONS (9)
  - ARTHRALGIA [None]
  - BREAST DISCOMFORT [None]
  - BREAST MASS [None]
  - CHEST DISCOMFORT [None]
  - DYSGEUSIA [None]
  - HEADACHE [None]
  - LIVER DISORDER [None]
  - PALPITATIONS [None]
  - PYREXIA [None]
